FAERS Safety Report 8187398-6 (Version None)
Quarter: 2012Q1

REPORT INFORMATION
  Report Type: 
  Country: None (occurrence: None)
  Receive Date: 20120306
  Receipt Date: 20120227
  Transmission Date: 20120608
  Serious: Yes (Hospitalization)
  Sender: FDA-Public Use
  Company Number: US-BAYER-2011-110621

PATIENT
  Age: 36 Year
  Sex: Female

DRUGS (9)
  1. CEPHALEXIN [Concomitant]
     Dosage: UNK
     Dates: start: 20100102
  2. LORAZEPAM [Concomitant]
     Dosage: UNK
     Dates: start: 20091109
  3. HYDROQUINONE [Concomitant]
     Dosage: UNK
     Dates: start: 20100102
  4. YASMIN [Suspect]
     Indication: CONTRACEPTION
     Dosage: UNK
     Route: 048
     Dates: start: 20050101, end: 20100101
  5. YASMIN [Suspect]
     Indication: MENSTRUAL CYCLE MANAGEMENT
  6. CLARITHROMYCIN [Concomitant]
     Dosage: UNK
     Dates: start: 20091013
  7. DROSPIRENONE AND ETHINYL ESTRADIOL [Suspect]
     Indication: CONTRACEPTION
     Dosage: UNK
     Route: 048
     Dates: start: 20050101, end: 20100101
  8. DROSPIRENONE AND ETHINYL ESTRADIOL [Suspect]
     Indication: MENSTRUAL CYCLE MANAGEMENT
  9. ALPRAZOLAM [Concomitant]
     Dosage: UNK
     Dates: start: 20091109

REACTIONS (6)
  - PULMONARY EMBOLISM [None]
  - INJURY [None]
  - ANXIETY [None]
  - EMOTIONAL DISTRESS [None]
  - PAIN [None]
  - GENERAL PHYSICAL HEALTH DETERIORATION [None]
